FAERS Safety Report 6974426-6 (Version None)
Quarter: 2010Q3

REPORT INFORMATION
  Report Type: 
  Country: None (occurrence: None)
  Receive Date: 20100909
  Receipt Date: 20080411
  Transmission Date: 20110219
  Serious: No
  Sender: FDA-Public Use
  Company Number: US-WYE-H03566108

PATIENT
  Sex: Male

DRUGS (3)
  1. PROTONIX [Suspect]
     Indication: DYSPEPSIA
     Dosage: 40 MG, FREQUENCY NOT SPECIFIED
     Route: 048
     Dates: start: 20080201, end: 20080411
  2. ASPIRIN [Concomitant]
  3. AVODART [Concomitant]

REACTIONS (3)
  - ANORECTAL DISCOMFORT [None]
  - HAEMORRHOIDS [None]
  - PRURITUS [None]
